FAERS Safety Report 11157079 (Version 2)
Quarter: 2015Q2

REPORT INFORMATION
  Report Type: Spontaneous
  Country: US (occurrence: US)
  Receive Date: 20150602
  Receipt Date: 20150618
  Transmission Date: 20150821
  Serious: Yes (Other)
  Sender: FDA-Public Use
  Company Number: US-B.I. PHARMACEUTICALS,INC./RIDGEFIELD-2015-BI-28065BP

PATIENT
  Age: 86 Year
  Sex: Female
  Weight: 49 kg

DRUGS (4)
  1. DORZOLAM [Concomitant]
     Indication: GLAUCOMA
     Dosage: 1 ANZ
     Route: 050
     Dates: start: 2014
  2. DIGOXIN. [Concomitant]
     Active Substance: DIGOXIN
     Indication: ATRIAL FIBRILLATION
     Dosage: 0.0625 MG
     Route: 048
     Dates: start: 2014
  3. PRADAXA [Suspect]
     Active Substance: DABIGATRAN ETEXILATE MESYLATE
     Indication: ATRIAL FIBRILLATION
     Dosage: 150 MG
     Route: 048
     Dates: start: 2012
  4. METOPROLOL [Concomitant]
     Active Substance: METOPROLOL
     Indication: ATRIAL FIBRILLATION
     Dosage: 75 MG
     Route: 048
     Dates: start: 2014

REACTIONS (5)
  - Cataract [Recovered/Resolved]
  - Balance disorder [Unknown]
  - Glaucoma [Unknown]
  - Muscular weakness [Unknown]
  - Product quality issue [Unknown]

NARRATIVE: CASE EVENT DATE: 201305
